FAERS Safety Report 13583797 (Version 2)
Quarter: 2017Q2

REPORT INFORMATION
  Report Type: Spontaneous
  Country: CH (occurrence: CH)
  Receive Date: 20170526
  Receipt Date: 20170609
  Transmission Date: 20170830
  Serious: Yes (Hospitalization)
  Sender: FDA-Public Use
  Company Number: CH-009507513-1705CHE010456

PATIENT
  Age: 55 Year
  Sex: Male

DRUGS (20)
  1. VALTREX [Concomitant]
     Active Substance: VALACYCLOVIR HYDROCHLORIDE
     Dates: end: 20170222
  2. NOVORAPID [Concomitant]
     Active Substance: INSULIN ASPART
     Dosage: UNK
  3. CANCIDAS [Suspect]
     Active Substance: CASPOFUNGIN ACETATE
     Dosage: 50 MG, Q24H
     Route: 041
     Dates: start: 20170315, end: 20170426
  4. MABTHERA [Suspect]
     Active Substance: RITUXIMAB
     Dosage: 640 MG, UNK
     Route: 041
     Dates: start: 20170217, end: 20170217
  5. NEORAL SANDIMMUN [Concomitant]
     Active Substance: CYCLOSPORINE
  6. PRADIF [Concomitant]
     Active Substance: TAMSULOSIN HYDROCHLORIDE
  7. FOSCAVIR [Suspect]
     Active Substance: FOSCARNET SODIUM
     Dosage: 5400 MG, Q12H
     Route: 041
     Dates: start: 20170224, end: 20170313
  8. DETRUSITOL [Concomitant]
     Active Substance: TOLTERODINE TARTRATE
  9. URSOFALK [Concomitant]
     Active Substance: URSODIOL
     Dosage: UNK
  10. METOLAZONE. [Concomitant]
     Active Substance: METOLAZONE
     Dosage: UNK
     Dates: end: 20170314
  11. ISONIAZID. [Suspect]
     Active Substance: ISONIAZID
     Dosage: 300 MG, Q24H
     Route: 048
     Dates: start: 201609, end: 20170202
  12. METRONIDAZOLE. [Suspect]
     Active Substance: METRONIDAZOLE
     Dosage: 500 MG, Q8H
     Route: 041
     Dates: start: 20170219, end: 20170306
  13. GANCICLOVIR. [Suspect]
     Active Substance: GANCICLOVIR
     Dosage: 300 MG, Q12H
     Route: 041
     Dates: start: 20170222, end: 20170223
  14. LASIX [Concomitant]
     Active Substance: FUROSEMIDE
     Dosage: UNK
     Dates: end: 20170426
  15. NOXAFIL [Suspect]
     Active Substance: POSACONAZOLE
     Dosage: 400 MG, Q24H
     Route: 048
     Dates: start: 20170212, end: 20170306
  16. NOXAFIL [Suspect]
     Active Substance: POSACONAZOLE
     Dosage: 400 MG, Q24H
     Route: 048
     Dates: end: 201702
  17. CANCIDAS [Suspect]
     Active Substance: CASPOFUNGIN ACETATE
     Dosage: 50 MG, Q24H
     Route: 041
     Dates: start: 20170301, end: 20170302
  18. AMBISOME [Suspect]
     Active Substance: AMPHOTERICIN B
     Dosage: 300 MG, Q24H
     Route: 041
     Dates: start: 20170223, end: 20170227
  19. CEFEPIME [Suspect]
     Active Substance: CEFEPIME HYDROCHLORIDE
     Dosage: 2 G, Q8H
     Route: 041
     Dates: start: 20170131, end: 20170206
  20. BACTRIM [Suspect]
     Active Substance: SULFAMETHOXAZOLE\TRIMETHOPRIM
     Dosage: 160 MG, TIW
     Route: 041
     Dates: end: 20170309

REACTIONS (2)
  - Hepatocellular injury [Recovered/Resolved]
  - Cholestatic liver injury [Recovering/Resolving]

NARRATIVE: CASE EVENT DATE: 20170131
